FAERS Safety Report 6078433-X (Version None)
Quarter: 2009Q1

REPORT INFORMATION
  Report Type: 
  Country: None (occurrence: None)
  Receive Date: 20090212
  Receipt Date: 20090205
  Transmission Date: 20090719
  Serious: Yes (Other)
  Sender: FDA-Public Use
  Company Number: DSA_33174_2009

PATIENT

DRUGS (1)
  1. ATIVAN [Suspect]
     Indication: DRUG USE FOR UNKNOWN INDICATION
     Dosage: 8 MG QD ORAL
     Route: 048

REACTIONS (2)
  - SPINAL CORD DISORDER [None]
  - WITHDRAWAL SYNDROME [None]
